FAERS Safety Report 14032585 (Version 2)
Quarter: 2024Q4

REPORT INFORMATION
  Report Type: Spontaneous
  Country: AU (occurrence: AU)
  Receive Date: 20171003
  Receipt Date: 20241030
  Transmission Date: 20250115
  Serious: Yes (Disabling, Other)
  Sender: ACCORD
  Company Number: AU-MLMSERVICE-20170918-0892691-1

PATIENT
  Age: 45 Year
  Sex: Male

DRUGS (5)
  1. MYCOPHENOLIC ACID [Suspect]
     Active Substance: MYCOPHENOLIC ACID
     Indication: Immunosuppressant drug therapy
  2. TACROLIMUS [Interacting]
     Active Substance: TACROLIMUS
     Indication: Immunosuppressant drug therapy
  3. VORICONAZOLE [Interacting]
     Active Substance: VORICONAZOLE
     Indication: Scedosporium infection
     Route: 048
  4. PREDNISONE [Suspect]
     Active Substance: PREDNISONE
     Indication: Immunosuppressant drug therapy
  5. VANCOMYCIN [Concomitant]
     Active Substance: VANCOMYCIN
     Indication: Scedosporium infection
     Route: 042

REACTIONS (5)
  - Polyomavirus-associated nephropathy [Recovering/Resolving]
  - Osteomyelitis [Recovering/Resolving]
  - Staphylococcal infection [Recovering/Resolving]
  - Drug interaction [Unknown]
  - Scedosporium infection [Recovering/Resolving]
